FAERS Safety Report 4370836-4 (Version None)
Quarter: 2004Q2

REPORT INFORMATION
  Report Type: 
  Country: None (occurrence: None)
  Receive Date: 20040602
  Receipt Date: 20040602
  Transmission Date: 20050107
  Serious: Yes (Hospitalization)
  Sender: FDA-Public Use
  Company Number: None

PATIENT
  Age: 50 Year
  Sex: Female

DRUGS (3)
  1. METRONIDAZOLE [Suspect]
     Indication: ROSACEA
     Dosage: 1 APPLICATION BID AM/PM
     Dates: start: 20040325, end: 20040601
  2. NORETHIN ACE [Concomitant]
  3. CREAM FOR ROSACEA [Concomitant]

REACTIONS (3)
  - ANXIETY [None]
  - CHEST PAIN [None]
  - PARAESTHESIA [None]
